FAERS Safety Report 8723621 (Version 2)
Quarter: 2013Q4

REPORT INFORMATION
  Report Type: Spontaneous
  Country: US (occurrence: US)
  Receive Date: 20120815
  Receipt Date: 20131101
  Transmission Date: 20140711
  Serious: No
  Sender: FDA-Public Use
  Company Number: US-009507513-1208USA003398

PATIENT
  Age: 68 Year
  Sex: Female

DRUGS (3)
  1. INVANZ [Suspect]
     Indication: OSTEOMYELITIS CHRONIC
     Dosage: UNK
     Route: 042
     Dates: start: 20110318, end: 20110425
  2. KEFLEX [Concomitant]
  3. ESTRADIOL [Concomitant]

REACTIONS (4)
  - Osteomyelitis [Not Recovered/Not Resolved]
  - Pain [Not Recovered/Not Resolved]
  - Local swelling [Not Recovered/Not Resolved]
  - Drug intolerance [Not Recovered/Not Resolved]
